FAERS Safety Report 10218643 (Version 1)
Quarter: 2014Q2

REPORT INFORMATION
  Report Type: Spontaneous
  Country: US (occurrence: US)
  Receive Date: 20140605
  Receipt Date: 20140605
  Transmission Date: 20141212
  Serious: No
  Sender: FDA-Public Use
  Company Number: US-PFIZER INC-2014150432

PATIENT
  Sex: Female

DRUGS (2)
  1. ADVIL [Suspect]
     Dosage: UNK
  2. ADVIL [Suspect]
     Dosage: TWO IBUPROFEN (REPORTED AS TWO DOSAGE FORM), UNK
     Dates: start: 20140529

REACTIONS (2)
  - Hypersensitivity [Unknown]
  - Mouth swelling [Unknown]
